FAERS Safety Report 6013281-8 (Version None)
Quarter: 2008Q4

REPORT INFORMATION
  Report Type: 
  Country: None (occurrence: None)
  Receive Date: 20081218
  Receipt Date: 20081218
  Transmission Date: 20090506
  Serious: Yes (Other)
  Sender: FDA-Public Use
  Company Number: None

PATIENT
  Sex: Female

DRUGS (5)
  1. LAMOTRIGINE [Suspect]
     Dosage: TAKE 1 TABLET TWICE A DAY
  2. PROTONIX [Concomitant]
  3. DILTIAZEM [Concomitant]
  4. LAMICTAL [Concomitant]
  5. AMBIEN [Concomitant]

REACTIONS (2)
  - CONVULSION [None]
  - PRODUCT QUALITY ISSUE [None]
